FAERS Safety Report 6570898-X (Version None)
Quarter: 2010Q1

REPORT INFORMATION
  Report Type: 
  Country: None (occurrence: None)
  Receive Date: 20100204
  Receipt Date: 20100201
  Transmission Date: 20100710
  Serious: Yes (Death)
  Sender: FDA-Public Use
  Company Number: US-GENENTECH-296748

PATIENT
  Sex: Male
  Weight: 78 kg

DRUGS (20)
  1. RITUXAN [Suspect]
     Indication: CHRONIC LYMPHOCYTIC LEUKAEMIA
     Dosage: 375 MG/M2, 1/WEEK
     Route: 042
     Dates: start: 20030801, end: 20030901
  2. RITUXAN [Suspect]
     Dosage: UNK
     Route: 042
     Dates: start: 20050401, end: 20050801
  3. RITUXAN [Suspect]
     Dosage: UNK
     Route: 042
     Dates: start: 20050801, end: 20050901
  4. RITUXAN [Suspect]
     Dosage: UNK
     Route: 042
     Dates: start: 20060801, end: 20060901
  5. RITUXAN [Suspect]
     Dosage: UNK
     Route: 042
     Dates: start: 20061101, end: 20061201
  6. CHEMOTHERAPY (UNK INGREDIENTS) [Concomitant]
     Indication: CHRONIC LYMPHOCYTIC LEUKAEMIA
  7. MEDICATION (UNK INGREDIENT) [Concomitant]
  8. CYTOXAN [Concomitant]
     Indication: CHRONIC LYMPHOCYTIC LEUKAEMIA
     Dosage: UNK
     Route: 042
     Dates: start: 20040201, end: 20040701
  9. PENTOSTATIN [Concomitant]
     Indication: CHRONIC LYMPHOCYTIC LEUKAEMIA
     Dosage: UNK
     Route: 042
     Dates: start: 20040201, end: 20040701
  10. CYCLOPHOSPHAMIDE [Concomitant]
     Indication: CHRONIC LYMPHOCYTIC LEUKAEMIA
     Dosage: UNK
     Route: 042
     Dates: start: 20050401, end: 20050801
  11. DOXORUBICIN HCL [Concomitant]
     Indication: CHRONIC LYMPHOCYTIC LEUKAEMIA
     Dosage: UNK
     Route: 042
     Dates: start: 20050401, end: 20050801
  12. PREDNISONE [Concomitant]
     Indication: CHRONIC LYMPHOCYTIC LEUKAEMIA
     Dosage: UNK
     Route: 042
     Dates: start: 20050401, end: 20050801
  13. VINCRISTINE [Concomitant]
     Indication: CHRONIC LYMPHOCYTIC LEUKAEMIA
     Dosage: UNK
     Route: 042
     Dates: start: 20050401, end: 20050801
  14. ALEMTUZUMAB [Concomitant]
     Indication: CHRONIC LYMPHOCYTIC LEUKAEMIA
     Dosage: UNK
     Route: 042
     Dates: start: 20050901, end: 20050901
  15. FLUDARABINE [Concomitant]
     Indication: CHRONIC LYMPHOCYTIC LEUKAEMIA
     Dosage: UNK
     Route: 042
     Dates: start: 20050901, end: 20050901
  16. MELPHALAN HYDROCHLORIDE [Concomitant]
     Indication: CHRONIC LYMPHOCYTIC LEUKAEMIA
     Dosage: UNK
     Route: 042
     Dates: start: 20050901, end: 20050901
  17. REVLIMID [Concomitant]
     Indication: CHRONIC LYMPHOCYTIC LEUKAEMIA
     Dosage: UNK
     Dates: start: 20070101, end: 20070901
  18. TEMSIROLIMUS [Concomitant]
     Indication: PROPHYLAXIS AGAINST GRAFT VERSUS HOST DISEASE
     Dosage: UNK
     Dates: start: 20051001, end: 20060501
  19. LENALIDOMIDE [Concomitant]
     Indication: CHRONIC LYMPHOCYTIC LEUKAEMIA
     Dosage: UNK
     Route: 048
     Dates: start: 20070101, end: 20070901
  20. GCSF OR GMCSF [Concomitant]
     Indication: NEUTROPENIA
     Dosage: UNK
     Dates: start: 20070605

REACTIONS (1)
  - PROGRESSIVE MULTIFOCAL LEUKOENCEPHALOPATHY [None]
